FAERS Safety Report 18530300 (Version 1)
Quarter: 2020Q4

REPORT INFORMATION
  Report Type: Report from Study
  Country: US (occurrence: US)
  Receive Date: 20201120
  Receipt Date: 20201120
  Transmission Date: 20210114
  Serious: Yes (Hospitalization, Other)
  Sender: FDA-Public Use
  Company Number: US-AUROBINDO-AUR-APL-2020-057419

PATIENT
  Age: 41 Year
  Sex: Female

DRUGS (1)
  1. VENLAFAXINE [Suspect]
     Active Substance: VENLAFAXINE HYDROCHLORIDE
     Indication: PRODUCT USED FOR UNKNOWN INDICATION
     Dosage: UNK
     Route: 065

REACTIONS (9)
  - Intentional overdose [Unknown]
  - Hyperthermia [Unknown]
  - Serotonin syndrome [Unknown]
  - Hyperreflexia [Unknown]
  - Toxicity to various agents [Unknown]
  - Eye movement disorder [Unknown]
  - Hypertension [Unknown]
  - Overdose [Unknown]
  - Tachycardia [Unknown]
